FAERS Safety Report 7931431 (Version 11)
Quarter: 2012Q4

REPORT INFORMATION
  Report Type: 
  Country: US (occurrence: US)
  Receive Date: 20110505
  Receipt Date: 20121010
  Transmission Date: 20130627
  Serious: Yes (Death, Hospitalization)
  Sender: FDA-Public Use
  Company Number: US-PFIZER INC-2011089005

PATIENT
  Age: 76 Year
  Sex: Male
  Weight: 73 kg

DRUGS (4)
  1. CELECOXIB [Suspect]
     Indication: OSTEOARTHRITIS
     Dosage: 100 mg, 2x/day
     Route: 048
     Dates: start: 20090623
  2. CELECOXIB [Suspect]
     Indication: RHEUMATOID ARTHRITIS
  3. NEXIUM [Concomitant]
     Indication: GASTRITIS PROPHYLAXIS
     Dosage: 40 mg, 1x/day
     Route: 048
     Dates: start: 20090623
  4. BENICAR [Concomitant]

REACTIONS (3)
  - Renal failure [Fatal]
  - Ischaemic cardiomyopathy [Fatal]
  - Respiratory failure [Fatal]
